FAERS Safety Report 9645651 (Version 3)
Quarter: 2013Q4

REPORT INFORMATION
  Report Type: Report from Study
  Country: FR (occurrence: FR)
  Receive Date: 20131025
  Receipt Date: 20131101
  Transmission Date: 20140711
  Serious: Yes (Death, Hospitalization)
  Sender: FDA-Public Use
  Company Number: FR-B.I. PHARMACEUTICALS,INC./RIDGEFIELD-2013-FF-01228FF

PATIENT
  Age: 55 Year
  Sex: Male
  Weight: 64 kg

DRUGS (12)
  1. BIBW 2992 [Suspect]
     Indication: SQUAMOUS CELL CARCINOMA
     Dosage: 40 MG
     Route: 048
     Dates: start: 20130403, end: 20130411
  2. BIBW 2992 [Suspect]
     Dosage: 30 MG
     Route: 048
     Dates: start: 20130423, end: 20130425
  3. DUROGESIC [Concomitant]
     Indication: PAIN
     Dosage: 4800 MCG
     Route: 061
     Dates: start: 201202
  4. ORAMORPH [Concomitant]
     Indication: PAIN
     Dosage: 240 MG
     Route: 048
     Dates: start: 201202
  5. NEURONTIN [Concomitant]
     Indication: PAIN
     Dosage: 1200 MG
     Route: 048
     Dates: start: 20130130
  6. MOVICOL [Concomitant]
     Indication: CONSTIPATION
     Dosage: 26.24 G
     Route: 048
     Dates: start: 20130403
  7. ZOLPIDEM [Concomitant]
     Indication: INSOMNIA
     Dosage: 20MG AS REQUIRED
     Route: 048
     Dates: start: 20120402
  8. NEFOPAM [Concomitant]
     Indication: PAIN
     Dosage: 60 MG
     Route: 030
     Dates: start: 20130403
  9. EUPANTOL [Concomitant]
     Indication: GASTROOESOPHAGEAL REFLUX DISEASE
     Dosage: 40 MG
     Route: 048
     Dates: start: 20130403
  10. CORTANCYL [Concomitant]
     Indication: OEDEMA
     Dosage: 60 MG
     Route: 048
     Dates: start: 20130403
  11. EXACYL [Concomitant]
     Indication: HAEMORRHAGE
     Dosage: 3 G
     Route: 042
     Dates: start: 20130403
  12. XANAX [Concomitant]
     Indication: ANXIETY
     Dosage: 0.5 MG
     Route: 048
     Dates: start: 20130422

REACTIONS (6)
  - General physical health deterioration [Fatal]
  - Asthenia [Recovered/Resolved]
  - Tumour haemorrhage [Recovered/Resolved]
  - Dizziness [Unknown]
  - Post procedural haemorrhage [Recovered/Resolved]
  - Oedema [Recovered/Resolved]
